FAERS Safety Report 10086196 (Version 1)
Quarter: 2014Q2

REPORT INFORMATION
  Report Type: Spontaneous
  Country: US (occurrence: None)
  Receive Date: 20140417
  Receipt Date: 20140417
  Transmission Date: 20141212
  Serious: Yes (Hospitalization)
  Sender: FDA-Public Use
  Company Number: None

PATIENT
  Age: 17 Year
  Sex: Female

DRUGS (1)
  1. MAKENA [Suspect]
     Indication: THREATENED LABOUR
     Route: 030
     Dates: start: 20140220, end: 20140415

REACTIONS (1)
  - Hospitalisation [None]
